FAERS Safety Report 15104247 (Version 1)
Quarter: 2018Q3

REPORT INFORMATION
  Report Type: Report from Study
  Country: KR (occurrence: KR)
  Receive Date: 20180703
  Receipt Date: 20180703
  Transmission Date: 20181010
  Serious: Yes (Hospitalization)
  Sender: FDA-Public Use
  Company Number: KR-SAKK-2018SA164055AA

PATIENT
  Age: 71 Year
  Sex: Male

DRUGS (1)
  1. INSULIN GLARGINE [Suspect]
     Active Substance: INSULIN GLARGINE
     Indication: DIABETES MELLITUS
     Dosage: 30 U, QD
     Route: 058
     Dates: start: 20180301

REACTIONS (1)
  - Cancer surgery [Recovered/Resolved]

NARRATIVE: CASE EVENT DATE: 20180528
